FAERS Safety Report 22110079 (Version 1)
Quarter: 2023Q1

REPORT INFORMATION
  Report Type: Spontaneous
  Country: FR (occurrence: FR)
  Receive Date: 20230317
  Receipt Date: 20230317
  Transmission Date: 20230417
  Serious: Yes (Other)
  Sender: FDA-Public Use
  Company Number: FR-PFIZER INC-PV202300034906

PATIENT
  Age: 69 Year

DRUGS (4)
  1. INFLIXIMAB [Suspect]
     Active Substance: INFLIXIMAB
     Indication: Birdshot chorioretinopathy
     Dosage: UNKNOWN
     Route: 065
     Dates: start: 20221118, end: 20230213
  2. INFLIXIMAB [Suspect]
     Active Substance: INFLIXIMAB
     Indication: Birdshot chorioretinopathy
     Dosage: 7.5 MG/KG, MONTHLY (7.5 MG/KG (570MG) EVERY 4 WEEKS), POWDER AND SOLVENT FOR SOLUTION FOR INFUSION
     Route: 042
  3. CRESTOR [Concomitant]
     Active Substance: ROSUVASTATIN CALCIUM
     Indication: Product used for unknown indication
     Dosage: UNKNOWN
     Route: 065
     Dates: end: 20230213
  4. SYMBICORT [Concomitant]
     Active Substance: BUDESONIDE\FORMOTEROL FUMARATE DIHYDRATE
     Indication: Product used for unknown indication
     Dosage: UNKNOWN
     Route: 065

REACTIONS (2)
  - Hepatitis acute [Unknown]
  - Off label use [Unknown]

NARRATIVE: CASE EVENT DATE: 20230209
